FAERS Safety Report 4750145-1 (Version None)
Quarter: 2005Q3

REPORT INFORMATION
  Report Type: 
  Country: None (occurrence: None)
  Receive Date: 20050823
  Receipt Date: 20050727
  Transmission Date: 20060218
  Serious: Yes (Life-Threatening, Hospitalization)
  Sender: FDA-Public Use
  Company Number: AU-BOEHRINGER INGELHEIM PHARMACEUTICALS, INC.-2005-BP-12771AU

PATIENT
  Sex: Female

DRUGS (8)
  1. MOBIC [Suspect]
     Indication: BACK PAIN
     Dosage: 7.5 OR 15 MG
     Dates: start: 20050101, end: 20050101
  2. EVISTA [Concomitant]
  3. ISOPTIN SR (VERAPAMIL SR) [Concomitant]
     Route: 048
  4. TRITACE [Concomitant]
     Route: 048
  5. REMINYL (GATANTAMINE) [Concomitant]
     Route: 048
  6. SINEQUAN [Concomitant]
     Route: 048
  7. SINEMET [Concomitant]
     Dosage: 400/100 MG/MG
     Route: 048
  8. MOTILIUM [Concomitant]
     Route: 048

REACTIONS (4)
  - GASTRIC ULCER [None]
  - HAEMOGLOBIN DECREASED [None]
  - OSTEOPOROSIS [None]
  - URINARY TRACT INFECTION [None]
